FAERS Safety Report 13446549 (Version 2)
Quarter: 2017Q2

REPORT INFORMATION
  Report Type: Spontaneous
  Country: US (occurrence: US)
  Receive Date: 20170417
  Receipt Date: 20170512
  Transmission Date: 20170830
  Serious: Yes (Life-Threatening, Hospitalization, Other)
  Sender: FDA-Public Use
  Company Number: US-TORRENT-00002673

PATIENT
  Age: 68 Year
  Sex: Female

DRUGS (7)
  1. AMPHETAMINE/DEXTROAMPHETAMINE [Concomitant]
     Active Substance: AMPHETAMINE\DEXTROAMPHETAMINE
  2. HYDROMORPHONE/HYDROMORPHONE HYDROCHLORIDE [Concomitant]
     Active Substance: HYDROMORPHONE
  3. OMEPRAZOLE. [Concomitant]
     Active Substance: OMEPRAZOLE
  4. TRAZODONE [Suspect]
     Active Substance: TRAZODONE HYDROCHLORIDE
  5. RISPERIDONE. [Suspect]
     Active Substance: RISPERIDONE
  6. PAROXETINE. [Suspect]
     Active Substance: PAROXETINE
  7. ZENDOCRINE [Concomitant]

REACTIONS (7)
  - Acute kidney injury [Recovered/Resolved]
  - Extra dose administered [Recovered/Resolved]
  - Rhabdomyolysis [Recovered/Resolved]
  - Compartment syndrome [Recovered/Resolved]
  - Off label use [Unknown]
  - Serotonin syndrome [Recovered/Resolved]
  - Encephalopathy [Recovered/Resolved]
